FAERS Safety Report 5054663-0 (Version None)
Quarter: 2006Q2

REPORT INFORMATION
  Report Type: 
  Country: None (occurrence: None)
  Receive Date: 20060614
  Receipt Date: 20060320
  Transmission Date: 20061013
  Serious: No
  Sender: FDA-Public Use
  Company Number: US200603005361

PATIENT
  Age: 55 Year
  Sex: Male

DRUGS (2)
  1. CIALIS [Suspect]
     Indication: ERECTILE DYSFUNCTION
     Dosage: 20 MG
     Dates: start: 20060313
  2. LIPITOR [Concomitant]

REACTIONS (5)
  - ABNORMAL DREAMS [None]
  - BACK PAIN [None]
  - DRUG EFFECT INCREASED [None]
  - HEADACHE [None]
  - INSOMNIA [None]
